FAERS Safety Report 11760385 (Version 1)
Quarter: 2015Q4

REPORT INFORMATION
  Report Type: Spontaneous
  Country: US (occurrence: US)
  Receive Date: 20151120
  Receipt Date: 20151120
  Transmission Date: 20160304
  Serious: Yes (Hospitalization)
  Sender: FDA-Public Use
  Company Number: US-ELI_LILLY_AND_COMPANY-US201211004128

PATIENT
  Age: 86 Year
  Sex: Female

DRUGS (1)
  1. FORTEO [Suspect]
     Active Substance: TERIPARATIDE
     Dosage: 20 UG, QD
     Route: 058
     Dates: start: 201204

REACTIONS (6)
  - Vertigo [Not Recovered/Not Resolved]
  - Fall [Unknown]
  - Dizziness [Unknown]
  - Back injury [Unknown]
  - Fall [Unknown]
  - Face injury [Unknown]

NARRATIVE: CASE EVENT DATE: 201205
